FAERS Safety Report 26020139 (Version 1)
Quarter: 2025Q4

REPORT INFORMATION
  Report Type: Spontaneous
  Country: US (occurrence: US)
  Receive Date: 20251110
  Receipt Date: 20251110
  Transmission Date: 20260118
  Serious: No
  Sender: TENSHI KAIZEN PRIVATE LIMITED
  Company Number: US-TENSHI KAIZEN PRIVATE LIMITED-2025TK000039

PATIENT
  Sex: Male

DRUGS (1)
  1. LORATADINE [Suspect]
     Active Substance: LORATADINE
     Indication: Product used for unknown indication
     Dosage: UNK
     Route: 048

REACTIONS (3)
  - Drug ineffective [Unknown]
  - Product storage error [Unknown]
  - Product size issue [Unknown]
